FAERS Safety Report 8014277-7 (Version None)
Quarter: 2011Q4

REPORT INFORMATION
  Report Type: 
  Country: None (occurrence: None)
  Receive Date: 20111229
  Receipt Date: 20111221
  Transmission Date: 20120403
  Serious: Yes (Hospitalization)
  Sender: FDA-Public Use
  Company Number: JP-GLAXOSMITHKLINE-B0770900A

PATIENT
  Sex: Female

DRUGS (4)
  1. PAXIL [Concomitant]
     Dosage: 10MG PER DAY
     Route: 048
     Dates: start: 20110501
  2. LAMICTAL [Suspect]
     Indication: BIPOLAR DISORDER
     Dosage: 25MG PER DAY
     Route: 048
     Dates: start: 20111121, end: 20111216
  3. ROHYPNOL [Concomitant]
     Dosage: 4MG PER DAY
  4. DEPAKENE [Concomitant]
     Dosage: 400MG PER DAY
     Route: 048

REACTIONS (2)
  - HYPERTHERMIA [None]
  - SKIN DISORDER [None]
